FAERS Safety Report 17043578 (Version 1)
Quarter: 2019Q4

REPORT INFORMATION
  Report Type: Spontaneous
  Country: US (occurrence: US)
  Receive Date: 20191115
  Receipt Date: 20191115
  Transmission Date: 20200122
  Serious: Yes (Hospitalization)
  Sender: FDA-Public Use
  Company Number: None

PATIENT
  Age: 29 Year
  Sex: Female

DRUGS (5)
  1. STELARA [Suspect]
     Active Substance: USTEKINUMAB
     Indication: CROHN^S DISEASE
     Dosage: ?          OTHER FREQUENCY:EVERY 4 WEEKS;?
     Route: 058
     Dates: start: 20170119
  2. AZATHIOPRINE. [Concomitant]
     Active Substance: AZATHIOPRINE
  3. ESOMERPRA MAG [Concomitant]
  4. ALLOPURINOL. [Concomitant]
     Active Substance: ALLOPURINOL
  5. ESCITALOPRAM [Concomitant]
     Active Substance: ESCITALOPRAM OXALATE

REACTIONS (2)
  - Complication associated with device [None]
  - Infection [None]

NARRATIVE: CASE EVENT DATE: 20191024
